FAERS Safety Report 4825624-9 (Version None)
Quarter: 2005Q4

REPORT INFORMATION
  Report Type: 
  Country: None (occurrence: None)
  Receive Date: 20051111
  Receipt Date: 20051027
  Transmission Date: 20060501
  Serious: No
  Sender: FDA-Public Use
  Company Number: US-GLAXOSMITHKLINE-A0580001A

PATIENT
  Sex: Male

DRUGS (2)
  1. AVODART [Suspect]
     Route: 048
     Dates: start: 20051019
  2. FLOMAX [Suspect]
     Route: 065

REACTIONS (3)
  - HAEMATURIA [None]
  - MUSCLE SPASMS [None]
  - MYALGIA [None]
